FAERS Safety Report 8395226-9 (Version None)
Quarter: 2012Q2

REPORT INFORMATION
  Report Type: 
  Country: None (occurrence: None)
  Receive Date: 20120530
  Receipt Date: 20120430
  Transmission Date: 20120825
  Serious: No
  Sender: FDA-Public Use
  Company Number: US-ASTRAZENECA-2011SE09718

PATIENT
  Age: 61 Year
  Sex: Female
  Weight: 61.2 kg

DRUGS (24)
  1. SEROQUEL [Suspect]
     Indication: BIPOLAR DISORDER
     Route: 048
     Dates: end: 20110201
  2. SYNTHROID [Concomitant]
     Indication: HYPOTHYROIDISM
  3. SEROQUEL [Suspect]
     Indication: MANIA
     Route: 048
     Dates: end: 20110201
  4. SEROQUEL [Suspect]
     Route: 048
  5. SEROQUEL [Suspect]
     Dosage: INCEREASED TO 600 MG
     Route: 048
  6. SEROQUEL [Suspect]
     Indication: SLEEP DISORDER
     Route: 048
     Dates: end: 20110201
  7. SEROQUEL [Suspect]
     Route: 048
  8. SEROQUEL [Suspect]
     Route: 048
     Dates: start: 20100501
  9. SEROQUEL [Suspect]
     Route: 048
  10. SEROQUEL [Suspect]
     Route: 048
  11. SEROQUEL [Suspect]
     Route: 048
     Dates: start: 20100501
  12. SEROQUEL [Suspect]
     Dosage: INCEREASED TO 600 MG
     Route: 048
  13. SEROQUEL [Suspect]
     Dosage: INCEREASED TO 600 MG
     Route: 048
  14. SEROQUEL [Suspect]
     Dosage: INCEREASED TO 600 MG
     Route: 048
  15. SEROQUEL [Suspect]
     Route: 048
     Dates: start: 20100501
  16. SEROQUEL [Suspect]
     Route: 048
     Dates: start: 20100501
  17. PAIN MEDICATION [Concomitant]
  18. SEROQUEL [Suspect]
     Route: 048
  19. SEROQUEL [Suspect]
     Indication: AFFECTIVE DISORDER
     Route: 048
     Dates: end: 20110201
  20. SEROQUEL [Suspect]
     Indication: BIPOLAR I DISORDER
     Route: 048
     Dates: end: 20110201
  21. SEROQUEL [Suspect]
     Dosage: INCEREASED TO 600 MG
     Route: 048
  22. NOVASTATIN [Concomitant]
  23. SEROQUEL [Suspect]
     Route: 048
     Dates: start: 20100501
  24. XANAX [Suspect]
     Route: 065

REACTIONS (16)
  - FEELING ABNORMAL [None]
  - MANIA [None]
  - INITIAL INSOMNIA [None]
  - SOMNOLENCE [None]
  - SLEEP DISORDER [None]
  - DRUG INEFFECTIVE [None]
  - NIGHTMARE [None]
  - INTENTIONAL DRUG MISUSE [None]
  - BIPOLAR DISORDER [None]
  - LIMB INJURY [None]
  - INSOMNIA [None]
  - MALAISE [None]
  - PANIC ATTACK [None]
  - PALPITATIONS [None]
  - PARAESTHESIA [None]
  - PSYCHOMOTOR HYPERACTIVITY [None]
